FAERS Safety Report 6418006-X (Version None)
Quarter: 2009Q4

REPORT INFORMATION
  Report Type: 
  Country: None (occurrence: None)
  Receive Date: 20091028
  Receipt Date: 20091023
  Transmission Date: 20100525
  Serious: No
  Sender: FDA-Public Use
  Company Number: US-ROXANE LABORATORIES, INC.-2009-RO-01107RO

PATIENT
  Sex: Male

DRUGS (2)
  1. FUROSEMIDE [Suspect]
  2. CLONIDINE [Suspect]

REACTIONS (2)
  - DRY MOUTH [None]
  - INCREASED UPPER AIRWAY SECRETION [None]
